FAERS Safety Report 4777063-7 (Version None)
Quarter: 2005Q3

REPORT INFORMATION
  Report Type: 
  Country: None (occurrence: None)
  Receive Date: 20050922
  Receipt Date: 20050922
  Transmission Date: 20060218
  Serious: Yes (Life-Threatening, Hospitalization)
  Sender: FDA-Public Use
  Company Number: None

PATIENT
  Age: 51 Year
  Sex: Female
  Weight: 104.5 kg

DRUGS (1)
  1. ZOLEDRONIC ACID [Suspect]
     Indication: RENAL CELL CARCINOMA STAGE UNSPECIFIED

REACTIONS (5)
  - BONE PAIN [None]
  - DRUG INEFFECTIVE [None]
  - JAW DISORDER [None]
  - OSTEONECROSIS [None]
  - SWELLING [None]
